FAERS Safety Report 4992962-9 (Version None)
Quarter: 2006Q2

REPORT INFORMATION
  Report Type: 
  Country: None (occurrence: None)
  Receive Date: 20060504
  Receipt Date: 20060118
  Transmission Date: 20061013
  Serious: Yes (Hospitalization)
  Sender: FDA-Public Use
  Company Number: US-MERCK-0601USA02225

PATIENT
  Age: 65 Year
  Sex: Female
  Weight: 88 kg

DRUGS (1)
  1. VIOXX [Suspect]
     Indication: ARTHRITIS
     Route: 048
     Dates: start: 20020401, end: 20040901

REACTIONS (12)
  - BLOOD CHOLESTEROL INCREASED [None]
  - BLOOD TRIGLYCERIDES INCREASED [None]
  - BURNING SENSATION [None]
  - ERYTHEMA [None]
  - HEART RATE IRREGULAR [None]
  - MENTAL DISORDER [None]
  - OVARIAN CANCER [None]
  - PAIN [None]
  - SPINAL CORD DISORDER [None]
  - SURGERY [None]
  - SWELLING [None]
  - THROMBOSIS [None]
